FAERS Safety Report 5637089-8 (Version None)
Quarter: 2008Q1

REPORT INFORMATION
  Report Type: 
  Country: None (occurrence: None)
  Receive Date: 20080225
  Receipt Date: 20070829
  Transmission Date: 20080703
  Serious: No
  Sender: FDA-Public Use
  Company Number: US-BRISTOL-MYERS SQUIBB COMPANY-13906433

PATIENT
  Age: 63 Year
  Sex: Male

DRUGS (9)
  1. PRINIVIL [Suspect]
     Route: 048
  2. ATENOLOL [Suspect]
     Route: 048
  3. GLIPIZIDE [Suspect]
  4. METFORMIN HCL [Suspect]
  5. ZETIA [Suspect]
     Route: 048
  6. HYTRIN [Suspect]
  7. NORVASC [Suspect]
  8. OMACOR [Suspect]
  9. HYDROCHLOROTHIAZIDE [Suspect]

REACTIONS (1)
  - SEXUAL DYSFUNCTION [None]
